FAERS Safety Report 12328593 (Version 1)
Quarter: 2016Q2

REPORT INFORMATION
  Report Type: Spontaneous
  Country: US (occurrence: US)
  Receive Date: 20160503
  Receipt Date: 20160503
  Transmission Date: 20160815
  Serious: No
  Sender: FDA-Public Use
  Company Number: US-BEH-2015049472

PATIENT
  Age: 62 Year
  Sex: Female
  Weight: 42 kg

DRUGS (8)
  1. HIZENTRA [Suspect]
     Active Substance: HUMAN IMMUNOGLOBULIN G
     Indication: IMMUNODEFICIENCY COMMON VARIABLE
     Route: 058
     Dates: start: 20150216, end: 20150315
  2. CALCIUM [Concomitant]
     Active Substance: CALCIUM
  3. RECLAST [Concomitant]
     Active Substance: ZOLEDRONIC ACID
  4. LEVAQUIN [Concomitant]
     Active Substance: LEVOFLOXACIN
  5. PROAIR HFA [Concomitant]
     Active Substance: ALBUTEROL SULFATE
  6. SYNTHROID [Concomitant]
     Active Substance: LEVOTHYROXINE SODIUM
  7. VITAMIN D [Concomitant]
     Active Substance: CHOLECALCIFEROL
  8. MULTIVITAMIN [Concomitant]
     Active Substance: VITAMINS

REACTIONS (2)
  - Fatigue [Recovered/Resolved]
  - Administration site swelling [Recovered/Resolved]

NARRATIVE: CASE EVENT DATE: 20150303
